FAERS Safety Report 6613512-7 (Version None)
Quarter: 2010Q1

REPORT INFORMATION
  Report Type: 
  Country: None (occurrence: None)
  Receive Date: 20100304
  Receipt Date: 20100223
  Transmission Date: 20100710
  Serious: Yes (Death, Life-Threatening, Other)
  Sender: FDA-Public Use
  Company Number: JP-WYE-H11688809

PATIENT
  Age: 81 Year
  Sex: Male
  Weight: 52 kg

DRUGS (12)
  1. ANCARON [Suspect]
     Indication: VENTRICULAR TACHYCARDIA
     Route: 048
     Dates: start: 20090709, end: 20090819
  2. ANCARON [Suspect]
     Indication: VENTRICULAR FIBRILLATION
     Route: 048
     Dates: start: 20090820, end: 20090916
  3. BASEN [Suspect]
     Indication: DIABETES MELLITUS
     Route: 048
     Dates: start: 20090521, end: 20090916
  4. ARTIST [Concomitant]
     Dosage: DOSE UNKNOWN
     Route: 065
     Dates: start: 20090501
  5. CONIEL [Concomitant]
     Dosage: DOSE UNKNOWN
     Route: 065
     Dates: start: 20090731
  6. ITOROL [Concomitant]
     Dosage: DOSE UNKNOWN
     Route: 065
     Dates: start: 20030301
  7. ASPIRIN [Concomitant]
     Dosage: DOSE UNKNOWN
     Route: 065
     Dates: start: 20030301
  8. PARIET [Concomitant]
     Dosage: DOSE UNKNOWN
     Route: 065
     Dates: start: 20090430
  9. ROSUVASTATIN [Concomitant]
     Dosage: DOSE UNKNOWN
     Route: 065
     Dates: start: 20090820
  10. PLAVIX [Suspect]
     Indication: ACUTE MYOCARDIAL INFARCTION
     Route: 048
     Dates: start: 20090709, end: 20090916
  11. PLAVIX [Suspect]
     Indication: PERCUTANEOUS CORONARY INTERVENTION
  12. SIGMART [Concomitant]
     Dosage: DOSE UNKNOWN
     Route: 065
     Dates: start: 20090326

REACTIONS (13)
  - ACUTE MYOCARDIAL INFARCTION [None]
  - DISSEMINATED INTRAVASCULAR COAGULATION [None]
  - HEPATIC CIRRHOSIS [None]
  - HYPOGLYCAEMIA [None]
  - INFECTION SUSCEPTIBILITY INCREASED [None]
  - INTERSTITIAL LUNG DISEASE [None]
  - LIVER DISORDER [None]
  - OPPORTUNISTIC INFECTION [None]
  - PNEUMONIA FUNGAL [None]
  - PNEUMONIA VIRAL [None]
  - VENTRICULAR FIBRILLATION [None]
  - VENTRICULAR TACHYCARDIA [None]
  - WHITE BLOOD CELL COUNT DECREASED [None]
